FAERS Safety Report 25474870 (Version 1)
Quarter: 2025Q2

REPORT INFORMATION
  Report Type: Spontaneous
  Country: US (occurrence: US)
  Receive Date: 20250624
  Receipt Date: 20250624
  Transmission Date: 20250717
  Serious: No
  Sender: SANOFI AVENTIS
  Company Number: US-SA-2025SA177346

PATIENT
  Age: 55 Year
  Sex: Male

DRUGS (9)
  1. DUPIXENT [Suspect]
     Active Substance: DUPILUMAB
     Indication: Psoriatic arthropathy
     Route: 058
     Dates: start: 20230103, end: 20250620
  2. ENBREL [Concomitant]
     Active Substance: ETANERCEPT
  3. VITAMIN D3 [Concomitant]
     Active Substance: CHOLECALCIFEROL
  4. ADVAIR HFA [Concomitant]
     Active Substance: FLUTICASONE PROPIONATE\SALMETEROL XINAFOATE
  5. SULFASALAZINE [Concomitant]
     Active Substance: SULFASALAZINE
  6. IBUPROFEN [Concomitant]
     Active Substance: IBUPROFEN
  7. ALBUTEROL [Concomitant]
     Active Substance: ALBUTEROL
  8. VITAMINS [Concomitant]
     Active Substance: VITAMINS
  9. CLOBETASOL [Concomitant]
     Active Substance: CLOBETASOL

REACTIONS (2)
  - Psoriasis [Unknown]
  - Product use in unapproved indication [Unknown]

NARRATIVE: CASE EVENT DATE: 20230103
